FAERS Safety Report 18477000 (Version 2)
Quarter: 2021Q1

REPORT INFORMATION
  Report Type: Spontaneous
  Country: US (occurrence: US)
  Receive Date: 20201107
  Receipt Date: 20210311
  Transmission Date: 20210419
  Serious: No
  Sender: FDA-Public Use
  Company Number: NVSC2020US292961

PATIENT
  Sex: Female

DRUGS (1)
  1. INTERFERON BETA?1B [Suspect]
     Active Substance: INTERFERON BETA-1B
     Indication: MULTIPLE SCLEROSIS
     Dosage: 20MG/0.4ML UNK UNK, QW
     Route: 058

REACTIONS (1)
  - Drug ineffective [Unknown]
